FAERS Safety Report 26147410 (Version 2)
Quarter: 2025Q4

REPORT INFORMATION
  Report Type: Report from Study
  Country: EU (occurrence: EU)
  Receive Date: 20251211
  Receipt Date: 20251222
  Transmission Date: 20260118
  Serious: Yes (Other)
  Sender: Day One Biopharmaceuticals
  Company Number: EU-IPSEN Group, Research and Development-2025-29908

PATIENT

DRUGS (7)
  1. OJEMDA [Suspect]
     Active Substance: TOVORAFENIB
     Indication: Optic glioma
     Dosage: 600 MILLIGRAM
     Route: 048
     Dates: start: 20240916
  2. OJEMDA [Suspect]
     Active Substance: TOVORAFENIB
     Dosage: 300 MILLIGRAM
     Dates: start: 20250915
  3. OJEMDA [Suspect]
     Active Substance: TOVORAFENIB
     Dosage: 500 MILLIGRAM
  4. OJEMDA [Suspect]
     Active Substance: TOVORAFENIB
     Dosage: 400 MILLIGRAM
  5. KEPPRA [Suspect]
     Active Substance: LEVETIRACETAM
     Indication: Epilepsy
     Dosage: 1500 MG
     Route: 048
  6. MINIRIN [Concomitant]
     Active Substance: DESMOPRESSIN ACETATE
     Indication: Diabetes mellitus
     Dosage: 180 MCG
  7. LEVOTHYROXINE [Concomitant]
     Active Substance: LEVOTHYROXINE
     Indication: Thyroid disorder
     Dosage: 112 MCG
     Route: 048

REACTIONS (5)
  - Hepatic cytolysis [Not Recovered/Not Resolved]
  - Haematotoxicity [Unknown]
  - Skin toxicity [Unknown]
  - Somnolence [Unknown]
  - Asthenia [Unknown]

NARRATIVE: CASE EVENT DATE: 20240923
